FAERS Safety Report 10260520 (Version 2)
Quarter: 2014Q3

REPORT INFORMATION
  Report Type: Report from Study
  Country: US (occurrence: US)
  Receive Date: 20140626
  Receipt Date: 20140702
  Transmission Date: 20150326
  Serious: Yes (Hospitalization)
  Sender: FDA-Public Use
  Company Number: US-UCBSA-2014002910

PATIENT
  Age: 64 Year
  Sex: Female
  Weight: 69 kg

DRUGS (11)
  1. METHOTREXATE [Concomitant]
     Active Substance: METHOTREXATE
     Indication: CROHN^S DISEASE
     Dosage: UNK
     Dates: start: 20120131
  2. CERTOLIZUMAB PEGOL CD [Suspect]
     Active Substance: CERTOLIZUMAB PEGOL
     Indication: CROHN^S DISEASE
     Dosage: UNK
     Dates: start: 201109
  3. NYSTATIN ACIS [Concomitant]
     Dosage: DOSE UNKNOWN
  4. METHOTREXATE [Concomitant]
     Active Substance: METHOTREXATE
     Dosage: UNK
     Dates: start: 20050804
  5. MACRODANTIN [Concomitant]
     Active Substance: NITROFURANTOIN
     Indication: CROHN^S DISEASE
     Dosage: UNK
     Dates: start: 200909
  6. DOCUSATE [Concomitant]
     Active Substance: DOCUSATE
     Dosage: DOSE UNKNOWN
  7. VITAMIN D3 [Concomitant]
     Active Substance: CHOLECALCIFEROL
     Dosage: DOSE UNKNOWN
  8. LAMISIL [Concomitant]
     Active Substance: TERBINAFINE HYDROCHLORIDE
     Dosage: DOSE UNKNOWN
  9. PRIMAL DEFENSE [Concomitant]
     Dosage: DOSE UNKNOWN
  10. BENADRYL [Concomitant]
     Active Substance: DIPHENHYDRAMINE HYDROCHLORIDE
     Dosage: DOSE UNKNOWN
  11. FOLIC ACID. [Concomitant]
     Active Substance: FOLIC ACID
     Dosage: DOSE UNKNOWN

REACTIONS (2)
  - Hernia [Recovered/Resolved]
  - Post procedural complication [None]

NARRATIVE: CASE EVENT DATE: 20140516
